FAERS Safety Report 8950593 (Version 1)
Quarter: 2012Q4

REPORT INFORMATION
  Report Type: Spontaneous
  Country: US (occurrence: None)
  Receive Date: 20121204
  Receipt Date: 20121204
  Transmission Date: 20130627
  Serious: Yes (Death)
  Sender: FDA-Public Use
  Company Number: None

PATIENT
  Age: 38 Year
  Sex: Female

DRUGS (1)
  1. FLUOROURACIL [Suspect]
     Indication: COLORECTAL CANCER

REACTIONS (5)
  - Nausea [None]
  - Vomiting [None]
  - Ventricular arrhythmia [None]
  - Toxicity to various agents [None]
  - General physical health deterioration [None]
